FAERS Safety Report 8413985-3 (Version None)
Quarter: 2012Q2

REPORT INFORMATION
  Report Type: 
  Country: None (occurrence: None)
  Receive Date: 20120605
  Receipt Date: 20120523
  Transmission Date: 20120825
  Serious: Yes (Other)
  Sender: FDA-Public Use
  Company Number: JP-ASTRAZENECA-2012SE36459

PATIENT
  Age: 82 Year
  Sex: Male

DRUGS (4)
  1. CLINDAMYCIN [Concomitant]
     Dates: start: 20120516, end: 20120520
  2. MEROPENEM [Suspect]
     Indication: SEPSIS
     Route: 042
     Dates: start: 20120516, end: 20120520
  3. MEROPENEM [Suspect]
     Route: 042
     Dates: start: 20120523
  4. MEROPENEM [Suspect]
     Route: 042
     Dates: start: 20120521, end: 20120522

REACTIONS (1)
  - DEPRESSED LEVEL OF CONSCIOUSNESS [None]
